FAERS Safety Report 7264729-2 (Version None)
Quarter: 2011Q1

REPORT INFORMATION
  Report Type: 
  Country: None (occurrence: None)
  Receive Date: 20110119
  Receipt Date: 20110110
  Transmission Date: 20110831
  Serious: Yes (Hospitalization)
  Sender: FDA-Public Use
  Company Number: 2011SP001278

PATIENT
  Age: 20 Year
  Sex: Female

DRUGS (1)
  1. SOLIA [Suspect]
     Indication: CONTRACEPTION
     Dosage: QD; PO
     Route: 048

REACTIONS (3)
  - LOSS OF CONSCIOUSNESS [None]
  - PULMONARY EMBOLISM [None]
  - PNEUMONIA [None]
